FAERS Safety Report 8530470 (Version 2)
Quarter: 2012Q4

REPORT INFORMATION
  Report Type: Report from Study
  Country: US (occurrence: US)
  Receive Date: 20120425
  Receipt Date: 20121002
  Transmission Date: 20130627
  Serious: Yes (Hospitalization)
  Sender: FDA-Public Use
  Company Number: US-JNJFOC-20120407614

PATIENT
  Age: 16 Year
  Sex: Male
  Weight: 70.31 kg

DRUGS (14)
  1. REMICADE [Suspect]
     Indication: INFLAMMATORY BOWEL DISEASE
     Route: 042
     Dates: start: 20111030
  2. ATIVAN [Concomitant]
  3. AMBIEN [Concomitant]
  4. ACTIGALL [Concomitant]
  5. TRAMADOL [Concomitant]
  6. PREDNISONE [Concomitant]
  7. HYDROCORTISONE [Concomitant]
  8. OMEPRAZOLE [Concomitant]
  9. LOPERAMIDE [Concomitant]
  10. COLESTIPOL [Concomitant]
  11. GUAR GUM [Concomitant]
  12. OXYCODONE/ACETAMINOPHEN [Concomitant]
  13. HYDROXYZINE [Concomitant]
  14. ADVIL [Concomitant]

REACTIONS (1)
  - Abdominal pain [Recovered/Resolved]
